FAERS Safety Report 12319738 (Version 2)
Quarter: 2016Q2

REPORT INFORMATION
  Report Type: Other
  Country: GB (occurrence: GB)
  Receive Date: 20160429
  Receipt Date: 20160518
  Transmission Date: 20160815
  Serious: Yes (Other)
  Sender: FDA-Public Use
  Company Number: GB-MYLANLABS-2016M1016434

PATIENT

DRUGS (2)
  1. ORAMORPH [Concomitant]
     Active Substance: MORPHINE SULFATE
     Dosage: UNK
  2. FUROSEMIDE. [Suspect]
     Active Substance: FUROSEMIDE
     Indication: CARDIAC FAILURE CONGESTIVE
     Dosage: 60 MG, UNK
     Route: 048
     Dates: start: 20140430, end: 20160322

REACTIONS (1)
  - Acute kidney injury [Not Recovered/Not Resolved]
